FAERS Safety Report 7002680-3 (Version None)
Quarter: 2010Q3

REPORT INFORMATION
  Report Type: 
  Country: None (occurrence: None)
  Receive Date: 20100920
  Receipt Date: 20070406
  Transmission Date: 20110219
  Serious: Yes (Other)
  Sender: FDA-Public Use
  Company Number: US-ASTRAZENECA-2006UW27463

PATIENT
  Age: 12024 Day
  Sex: Female
  Weight: 90.7 kg

DRUGS (9)
  1. SEROQUEL [Suspect]
     Indication: DEPRESSION
     Dosage: 25 MG - 100 MG
     Route: 048
     Dates: start: 20031217
  2. SEROQUEL [Suspect]
     Indication: ANXIETY
     Dosage: 25 MG - 100 MG
     Route: 048
     Dates: start: 20031217
  3. SEROQUEL [Suspect]
     Route: 048
  4. SEROQUEL [Suspect]
     Route: 048
  5. ZOLOFT [Concomitant]
     Route: 048
     Dates: start: 20040301
  6. LEXAPRO [Concomitant]
     Dates: start: 20031219
  7. PREVACID [Concomitant]
     Dates: start: 20031219
  8. NORVASC [Concomitant]
     Route: 048
     Dates: start: 20041009
  9. FAMOTIDINE [Concomitant]
     Dates: start: 20041008

REACTIONS (2)
  - PANCREATITIS [None]
  - PANCREATITIS RELAPSING [None]
